FAERS Safety Report 5671318-X (Version None)
Quarter: 2008Q1

REPORT INFORMATION
  Report Type: 
  Country: None (occurrence: None)
  Receive Date: 20080318
  Receipt Date: 20080306
  Transmission Date: 20080703
  Serious: Yes (Other)
  Sender: FDA-Public Use
  Company Number: US-PFIZER INC-2008021889

PATIENT
  Sex: Female
  Weight: 72.727 kg

DRUGS (1)
  1. CYTOTEC [Suspect]
     Indication: UTERINE CERVIX DILATION PROCEDURE
     Route: 067

REACTIONS (3)
  - HAEMORRHAGE [None]
  - INTENTIONAL DRUG MISUSE [None]
  - MUSCLE SPASMS [None]
